FAERS Safety Report 6512793-8 (Version None)
Quarter: 2009Q4

REPORT INFORMATION
  Report Type: 
  Country: None (occurrence: None)
  Receive Date: 20091217
  Receipt Date: 20091217
  Transmission Date: 20100525
  Serious: Yes (Other)
  Sender: FDA-Public Use
  Company Number: 2009SP041183

PATIENT
  Age: 11 Year
  Sex: Male
  Weight: 38.5557 kg

DRUGS (5)
  1. ALBUTEROL SULFATE AUTOHALER [Suspect]
     Indication: DRUG USE FOR UNKNOWN INDICATION
     Dosage: INH
     Route: 055
  2. CLONIDINE HCL [Suspect]
     Indication: SLEEP DISORDER
     Dosage: 0.1 MG;QD;PO
     Route: 048
     Dates: start: 20091115, end: 20091115
  3. SINGULAIR [Suspect]
     Indication: DRUG USE FOR UNKNOWN INDICATION
  4. CONCERTA [Suspect]
     Indication: DRUG USE FOR UNKNOWN INDICATION
  5. ZYRTEC [Suspect]
     Indication: DRUG USE FOR UNKNOWN INDICATION

REACTIONS (2)
  - HYPERSENSITIVITY [None]
  - TRISMUS [None]
